FAERS Safety Report 12770484 (Version 2)
Quarter: 2016Q4

REPORT INFORMATION
  Report Type: Spontaneous
  Country: RU (occurrence: RU)
  Receive Date: 20160922
  Receipt Date: 20161004
  Transmission Date: 20170207
  Serious: Yes (Other)
  Sender: FDA-Public Use
  Company Number: PHHY2016RU128600

PATIENT
  Age: 65 Year
  Sex: Female

DRUGS (4)
  1. CONCOR [Concomitant]
     Active Substance: BISOPROLOL FUMARATE
     Indication: HYPERTENSION
     Dosage: (HALF TABLET IN THE MORNING)
     Route: 065
  2. ACLASTA [Suspect]
     Active Substance: ZOLEDRONIC ACID
     Indication: OSTEOPOROSIS
     Dosage: UNK
     Route: 042
     Dates: start: 20150810
  3. ARTRA [Concomitant]
     Indication: OSTEOARTHRITIS
     Dosage: UNK (PERIODICALLY)
     Route: 065
  4. CALCIUM D3 NYCOMED [Concomitant]
     Indication: OSTEOPOROSIS
     Route: 065

REACTIONS (3)
  - Chronic lymphocytic leukaemia [Unknown]
  - Lymphocyte count increased [Unknown]
  - White blood cell count increased [Unknown]

NARRATIVE: CASE EVENT DATE: 201607
